FAERS Safety Report 13510386 (Version 5)
Quarter: 2018Q1

REPORT INFORMATION
  Report Type: Report from Study
  Country: US (occurrence: US)
  Receive Date: 20170503
  Receipt Date: 20180125
  Transmission Date: 20180508
  Serious: No
  Sender: FDA-Public Use
  Company Number: US-AMGEN-USASL2017039626

PATIENT
  Age: 72 Year
  Sex: Female
  Weight: 82.54 kg

DRUGS (10)
  1. PLAVIX [Suspect]
     Active Substance: CLOPIDOGREL BISULFATE
     Indication: PRODUCT USED FOR UNKNOWN INDICATION
     Dosage: UNK
     Route: 065
  2. YOSPRALA [Concomitant]
     Active Substance: ASPIRIN\OMEPRAZOLE
     Dosage: 81-40MG, QD (90 DAYS)
     Route: 048
  3. FERROUSUL [Concomitant]
     Dosage: 325 MG, QD
     Route: 048
  4. REPATHA [Suspect]
     Active Substance: EVOLOCUMAB
     Indication: TYPE IIA HYPERLIPIDAEMIA
  5. EXFORGE [Concomitant]
     Active Substance: AMLODIPINE BESYLATE\VALSARTAN
     Dosage: 10-160MG, QD
  6. VITAMIN C [Concomitant]
     Active Substance: ASCORBIC ACID
     Dosage: UNK UNK, QD
     Route: 048
  7. REPATHA [Suspect]
     Active Substance: EVOLOCUMAB
     Indication: BLOOD CHOLESTEROL INCREASED
     Dosage: 140 MG, Q2WK
     Route: 065
     Dates: start: 20160926
  8. CYMBALTA [Concomitant]
     Active Substance: DULOXETINE HYDROCHLORIDE
     Dosage: 60 MG, QD
  9. VITAMIN B12 [Concomitant]
     Active Substance: CYANOCOBALAMIN
     Dosage: 100 MUG, QD
  10. LORAZEPAM. [Concomitant]
     Active Substance: LORAZEPAM
     Dosage: 1 MG, UNK (15 DAYS)

REACTIONS (10)
  - Intermittent claudication [Unknown]
  - Anaemia [Unknown]
  - Musculoskeletal stiffness [Unknown]
  - Myalgia [Unknown]
  - Neck pain [Unknown]
  - Rash [Unknown]
  - Electrocardiogram abnormal [Unknown]
  - Peripheral vascular disorder [Unknown]
  - Joint stiffness [Unknown]
  - Dry mouth [Unknown]

NARRATIVE: CASE EVENT DATE: 20170320
